FAERS Safety Report 21744157 (Version 3)
Quarter: 2025Q3

REPORT INFORMATION
  Report Type: Report from Study
  Country: EU (occurrence: EU)
  Receive Date: 20221218
  Receipt Date: 20250713
  Transmission Date: 20251021
  Serious: Yes (Life-Threatening, Hospitalization, Disabling, Congenital Anomaly, Other)
  Sender: AUROBINDO
  Company Number: EU-EMA-DD-20180803-dkevhprod-170129

PATIENT
  Age: 35 Week
  Sex: Female
  Weight: 2.85 kg

DRUGS (1)
  1. IBUPROFEN [Suspect]
     Active Substance: IBUPROFEN
     Indication: Headache
     Route: 064

REACTIONS (11)
  - Tricuspid valve incompetence [Recovered/Resolved]
  - Premature baby [Unknown]
  - Ductus arteriosus premature closure [Recovered/Resolved with Sequelae]
  - Cardiac hypertrophy [Not Recovered/Not Resolved]
  - Cardiomegaly [Unknown]
  - Neonatal cardiac failure [Recovered/Resolved]
  - Pulmonary valve incompetence [Recovered/Resolved]
  - Cardiac failure [Recovered/Resolved]
  - Apgar score low [Unknown]
  - Ductus arteriosus stenosis foetal [Unknown]
  - Right ventricular hypertrophy [Not Recovered/Not Resolved]

NARRATIVE: CASE EVENT DATE: 20020901
